FAERS Safety Report 5770780-1 (Version None)
Quarter: 2008Q2

REPORT INFORMATION
  Report Type: 
  Country: None (occurrence: None)
  Receive Date: 20080613
  Receipt Date: 20080513
  Transmission Date: 20081010
  Serious: No
  Sender: FDA-Public Use
  Company Number: US-ABBOTT-08P-163-0451740-00

PATIENT
  Sex: Female
  Weight: 62.198 kg

DRUGS (20)
  1. HUMIRA [Suspect]
     Indication: RHEUMATOID ARTHRITIS
     Route: 058
     Dates: start: 20080427
  2. HUMIRA [Suspect]
     Indication: ARTHRITIS
  3. NABUMETONE [Concomitant]
     Indication: FALL
     Route: 048
     Dates: start: 20080401
  4. AMITRIPTYLINE HYDROCHLORIDE [Concomitant]
     Indication: UNEVALUABLE EVENT
     Route: 048
     Dates: start: 20060101
  5. VALIUM [Concomitant]
     Indication: TREMOR
     Route: 048
  6. LEFLUNOMIDE [Concomitant]
     Indication: ARTHRITIS
     Route: 048
     Dates: start: 20070101
  7. LANSOPRAZOLE [Concomitant]
     Indication: GASTROOESOPHAGEAL REFLUX DISEASE
     Route: 048
     Dates: start: 20050101
  8. BENICAR HCT [Concomitant]
     Indication: BLOOD PRESSURE
     Dosage: 40/12.5MG QD
     Route: 048
     Dates: start: 20060101
  9. AMLODIPINE [Concomitant]
     Indication: BLOOD PRESSURE
     Route: 048
     Dates: start: 20080301
  10. POTASSIUM CHLORIDE [Concomitant]
     Indication: ARTHRITIS
     Route: 048
     Dates: start: 20070101
  11. MORPHINE [Concomitant]
     Indication: PAIN
     Route: 048
     Dates: start: 20071001
  12. MORPHINE SULFATE FAST ACTING [Concomitant]
     Indication: PAIN
     Route: 048
  13. ASPIRIN [Concomitant]
     Indication: DRUG USE FOR UNKNOWN INDICATION
     Route: 048
     Dates: start: 20070101
  14. GRIAMCINOLONE LOTION [Concomitant]
     Indication: BLISTER
     Dosage: 0.5/15MG
     Route: 061
     Dates: start: 20071001
  15. LIDOCAINE [Concomitant]
     Indication: BLISTER
     Route: 061
     Dates: start: 20071001
  16. APHILHASOL 5% ORAL PASTE [Concomitant]
     Indication: BLISTER
     Route: 048
     Dates: start: 20071001
  17. TRIAMCIM/ORABAS PASTE [Concomitant]
     Indication: ORAL PAIN
     Route: 048
     Dates: start: 20071001
  18. MAGIC MOUTH WASH [Concomitant]
     Indication: ORAL PAIN
     Dosage: SWISH AND SPIT
  19. LIDOCAINE [Concomitant]
     Indication: PAIN
     Dosage: 15%-30 PATCH
     Dates: start: 20070101
  20. MACROGOL [Concomitant]
     Indication: CONSTIPATION
     Dates: start: 20030101

REACTIONS (4)
  - ACCIDENTAL EXPOSURE [None]
  - INJECTION SITE PAIN [None]
  - INJECTION SITE SWELLING [None]
  - INJECTION SITE WARMTH [None]
